FAERS Safety Report 25846061 (Version 2)
Quarter: 2025Q4

REPORT INFORMATION
  Report Type: Spontaneous
  Country: US (occurrence: US)
  Receive Date: 20250925
  Receipt Date: 20251003
  Transmission Date: 20260117
  Serious: Yes (Other)
  Sender: MIRUM PHARMACEUTICALS
  Company Number: US-MIRUM PHARMACEUTICALS, INC.-US-MIR-25-00669

PATIENT

DRUGS (5)
  1. LIVMARLI [Suspect]
     Active Substance: MARALIXIBAT CHLORIDE
     Indication: Progressive familial intrahepatic cholestasis
     Dosage: UNK, UNK
     Route: 065
     Dates: start: 202502, end: 20250902
  2. VITAMIN D NOS [Concomitant]
     Active Substance: CHOLECALCIFEROL\ERGOCALCIFEROL
     Indication: Product used for unknown indication
     Dosage: UNK, UNK
     Route: 065
  3. VITAMIN A [Concomitant]
     Active Substance: VITAMIN A
     Indication: Product used for unknown indication
     Dosage: UNK, UNK
     Route: 065
  4. URSO [Concomitant]
     Active Substance: URSODIOL
     Indication: Product used for unknown indication
     Dosage: UNK, UNK
     Route: 065
  5. DEXBROMPHENIRAMINE MALEATE\DEXTROMETHORPHAN HYDROBROMIDE\GUAIFENESIN\P [Concomitant]
     Active Substance: DEXBROMPHENIRAMINE MALEATE\DEXTROMETHORPHAN HYDROBROMIDE\GUAIFENESIN\PSEUDOEPHEDRINE HYDROCHLORIDE
     Indication: Product used for unknown indication
     Dosage: UNK, UNK
     Route: 065

REACTIONS (3)
  - Hepatic enzyme increased [Not Recovered/Not Resolved]
  - Jaundice [Not Recovered/Not Resolved]
  - Off label use [Unknown]

NARRATIVE: CASE EVENT DATE: 20250101
